FAERS Safety Report 12997672 (Version 1)
Quarter: 2016Q4

REPORT INFORMATION
  Report Type: Spontaneous
  Country: US (occurrence: US)
  Receive Date: 20161205
  Receipt Date: 20161205
  Transmission Date: 20170207
  Serious: Yes (Death, Life-Threatening, Hospitalization, Disabling, Other)
  Sender: FDA-Public Use
  Company Number: US-CLINIGEN GROUP PLC/ CLINIGEN HEALTHCARE LTD-E2B_00004541

PATIENT
  Age: 36 Year
  Sex: Female
  Weight: 70.5 kg

DRUGS (31)
  1. FOSCAVIR [Suspect]
     Active Substance: FOSCARNET SODIUM
     Dosage: TOTAL DAILY DOSE: 4512 MG
     Route: 042
     Dates: start: 19940518
  2. BENADRYL [Concomitant]
     Active Substance: DIPHENHYDRAMINE HYDROCHLORIDE
     Dosage: TOTAL DAILY DOSE: 50 MG
     Route: 065
     Dates: start: 19940720
  3. HIVID [Concomitant]
     Active Substance: ZALCITABINE
     Dosage: DOSE: 0.75 MG TOTAL DAILY DOSE: 2.25 MG
     Route: 065
  4. INSULIN [Concomitant]
     Active Substance: INSULIN NOS
     Indication: TYPE 1 DIABETES MELLITUS
     Route: 065
  5. NORMAL SALINE [Concomitant]
     Active Substance: SODIUM CHLORIDE
     Indication: FLUID REPLACEMENT
     Dosage: DOSE: 2  TOTAL DAILY DOSE: 2
     Route: 042
  6. TAGAMET [Concomitant]
     Active Substance: CIMETIDINE
     Dosage: TOTAL DAILY DOSE: 800 MG
     Route: 065
     Dates: start: 19940720
  7. TYLENOL [Concomitant]
     Active Substance: ACETAMINOPHEN
     Indication: PROPHYLAXIS
     Dosage: DOSE: 2  TOTAL DAILY DOSE: 2
     Route: 048
  8. TYLENOL WITH CODEINE [Concomitant]
     Active Substance: ACETAMINOPHEN\CODEINE PHOSPHATE
     Route: 065
     Dates: start: 19940720
  9. VALIUM [Concomitant]
     Active Substance: DIAZEPAM
     Indication: GENERALISED TONIC-CLONIC SEIZURE
     Route: 065
  10. BIAXIN [Concomitant]
     Active Substance: CLARITHROMYCIN
     Dosage: DOSE: 500 MG TOTAL DAILY DOSE: 1000 MG
     Route: 065
     Dates: start: 19940720
  11. VENTOLIN [Concomitant]
     Active Substance: ALBUTEROL SULFATE
     Indication: ASTHMA
     Dosage: DOSE: 4  TOTAL DAILY DOSE: 24
     Route: 055
     Dates: start: 19940720
  12. FOSCAVIR [Suspect]
     Active Substance: FOSCARNET SODIUM
     Dosage: DOSE: 5  TOTAL DAILY DOSE: 15
     Route: 042
     Dates: start: 19940723, end: 19940727
  13. FOSCAVIR [Suspect]
     Active Substance: FOSCARNET SODIUM
     Dosage: TOTAL DAILY DOSE: 9
     Route: 042
     Dates: end: 19940720
  14. PHENOBARBITAL. [Concomitant]
     Active Substance: PHENOBARBITAL
     Indication: GENERALISED TONIC-CLONIC SEIZURE
     Route: 065
  15. XANAX [Concomitant]
     Active Substance: ALPRAZOLAM
     Indication: PANIC REACTION
     Dosage: DOSE: 1 MG TOTAL DAILY DOSE: 4 MG
     Route: 065
     Dates: start: 19940720
  16. FOSCAVIR [Suspect]
     Active Substance: FOSCARNET SODIUM
     Dosage: TOTAL DAILY DOSE: 4512 MG
     Route: 042
     Dates: end: 19931104
  17. AMPHOTERICIN B. [Concomitant]
     Active Substance: AMPHOTERICIN B
     Dosage: DOSE: 35 MG TOTAL DAILY DOSE: 35 MG
     Route: 042
  18. GANCICLOVIR. [Concomitant]
     Active Substance: GANCICLOVIR
     Indication: PNEUMONIA CYTOMEGALOVIRAL
     Route: 065
  19. PREDNISONE. [Concomitant]
     Active Substance: PREDNISONE
     Indication: ASTHMA
     Dosage: DOSE: 20 MG TOTAL DAILY DOSE: 40 MG
     Route: 048
     Dates: start: 19940720
  20. SLOW-MAG [Concomitant]
     Active Substance: MAGNESIUM CHLORIDE
     Dosage: DOSE: 2  TOTAL DAILY DOSE: 6
     Route: 065
     Dates: start: 19940720
  21. FOSCAVIR [Suspect]
     Active Substance: FOSCARNET SODIUM
     Indication: CYTOMEGALOVIRUS CHORIORETINITIS
     Dosage: DOSE: 60 MG/KG TOTAL DAILY DOSE: 12690 MG
     Route: 042
     Dates: start: 19930803
  22. CEFAZOLIN [Concomitant]
     Active Substance: CEFAZOLIN
     Indication: PNEUMONIA BACTERIAL
     Route: 065
  23. CODEINE [Concomitant]
     Active Substance: CODEINE
     Indication: COUGH
     Route: 065
  24. DALMANE [Concomitant]
     Active Substance: FLURAZEPAM HYDROCHLORIDE
     Indication: INSOMNIA
     Route: 065
  25. DOPAMINE [Concomitant]
     Active Substance: DOPAMINE\DOPAMINE HYDROCHLORIDE
     Indication: UNEVALUABLE EVENT
     Route: 065
  26. ATROVENT [Concomitant]
     Active Substance: IPRATROPIUM BROMIDE
     Indication: ASTHMA
     Dosage: DOSE: 4  TOTAL DAILY DOSE: 24
     Route: 055
     Dates: start: 19940720
  27. BACTRIM [Concomitant]
     Active Substance: SULFAMETHOXAZOLE\TRIMETHOPRIM
     Route: 065
  28. D5W [Concomitant]
     Indication: FLUID REPLACEMENT
     Dosage: DOSE: 500  TOTAL DAILY DOSE: 500
     Route: 042
  29. DILANTIN [Concomitant]
     Active Substance: PHENYTOIN
     Indication: GENERALISED TONIC-CLONIC SEIZURE
     Route: 065
  30. OXYGEN. [Concomitant]
     Active Substance: OXYGEN
     Indication: RESPIRATORY DISTRESS
     Route: 055
     Dates: start: 19940723, end: 19940727
  31. CIPRO [Concomitant]
     Active Substance: CIPROFLOXACIN HYDROCHLORIDE
     Route: 065

REACTIONS (21)
  - Shock [Fatal]
  - Cardiac arrest [Fatal]
  - Leukopenia [Unknown]
  - Myopathy [Unknown]
  - Hypernatraemia [Unknown]
  - Pneumonia [Fatal]
  - Blood creatine phosphokinase increased [Unknown]
  - Hypocalcaemia [Unknown]
  - Generalised tonic-clonic seizure [Unknown]
  - Metabolic acidosis [Fatal]
  - Pyrexia [Unknown]
  - Renal tubular necrosis [Fatal]
  - Diabetes mellitus [Fatal]
  - Fungal infection [Fatal]
  - Pancreatitis [Unknown]
  - Respiratory arrest [Fatal]
  - Cough [Not Recovered/Not Resolved]
  - Viral infection [Fatal]
  - Gastrointestinal disorder [Unknown]
  - Anaemia [Unknown]
  - Blood lactate dehydrogenase increased [Unknown]

NARRATIVE: CASE EVENT DATE: 19931104
